FAERS Safety Report 5743602-2 (Version None)
Quarter: 2008Q2

REPORT INFORMATION
  Report Type: 
  Country: None (occurrence: None)
  Receive Date: 20080519
  Receipt Date: 20080519
  Transmission Date: 20081010
  Serious: Yes (Life-Threatening, Hospitalization)
  Sender: FDA-Public Use
  Company Number: None

PATIENT
  Age: 38 Year
  Sex: Female

DRUGS (1)
  1. CERVIDIL [Suspect]
     Indication: INDUCED LABOUR
     Dates: start: 20051111, end: 20051111

REACTIONS (5)
  - COMPLICATION OF DELIVERY [None]
  - DRUG EXPOSURE DURING PREGNANCY [None]
  - FOETAL HEART RATE ABNORMAL [None]
  - MATERNAL DRUGS AFFECTING FOETUS [None]
  - UTERINE RUPTURE [None]
